FAERS Safety Report 24049410 (Version 1)
Quarter: 2024Q3

REPORT INFORMATION
  Report Type: Spontaneous
  Country: GB (occurrence: GB)
  Receive Date: 20240704
  Receipt Date: 20240704
  Transmission Date: 20241016
  Serious: No
  Sender: ALKEM
  Company Number: None

PATIENT
  Age: 63 Year
  Sex: Male
  Weight: 69 kg

DRUGS (14)
  1. IBUPROFEN [Suspect]
     Active Substance: IBUPROFEN
     Indication: Product used for unknown indication
     Dosage: 200 MILLIGRAM (TABLET)
     Route: 065
  2. AMITRIPTYLINE HYDROCHLORIDE [Concomitant]
     Active Substance: AMITRIPTYLINE HYDROCHLORIDE
     Indication: Sleep disorder
     Dosage: UNK, HS (ONE TO TWO AT NIGHT TWO HOURS BEFORE BED FOR SLEEP)
     Route: 065
     Dates: start: 20230530
  3. ATORVASTATIN [Concomitant]
     Active Substance: ATORVASTATIN
     Indication: Product used for unknown indication
     Dosage: UNK, QD (ONE IN THE EVENING)
     Route: 065
     Dates: start: 20230530
  4. BETAHISTINE [Concomitant]
     Active Substance: BETAHISTINE
     Indication: Product used for unknown indication
     Dosage: UNK, TID (ONE TO BE TAKEN THREE TIMES A DAY)
     Route: 065
     Dates: start: 20230530
  5. CETIRIZINE [Concomitant]
     Active Substance: CETIRIZINE HYDROCHLORIDE
     Indication: Pruritus
     Dosage: UNK, PRN (1 TO 2 TABLETS ONCE DAILY AS NEEDED FOR ITCHING)
     Route: 065
     Dates: start: 20230530
  6. COCODAMOL [Concomitant]
     Active Substance: ACETAMINOPHEN\CODEINE PHOSPHATE
     Indication: Product used for unknown indication
     Dosage: UNK, PRN (ONE OR TWO FOUR TIMES A DAY AS NEEDED FOR BAD P.)
     Route: 065
     Dates: start: 20230530
  7. METFORMIN [Concomitant]
     Active Substance: METFORMIN HYDROCHLORIDE
     Indication: Product used for unknown indication
     Dosage: UNK, QD (ONE TO BE TAKEN EACH DAY WITH BREAKFAST)
     Route: 065
     Dates: start: 20230403
  8. MIRTAZAPINE [Concomitant]
     Active Substance: MIRTAZAPINE
     Indication: Product used for unknown indication
     Dosage: 30 MILLIGRAM
     Route: 065
     Dates: start: 20240312
  9. NAPROXEN [Concomitant]
     Active Substance: NAPROXEN
     Indication: Pain
     Dosage: UNK, PRN 9ONE TO BE TAKEN TWICE A DAY AS NEEDED FOR PAIN)
     Route: 065
  10. OMEPRAZOLE [Concomitant]
     Active Substance: OMEPRAZOLE
     Indication: Product used for unknown indication
     Dosage: UNK, QD (TAKE TWO DAILY WHILE TAKING ANTI-INFLAMMATORIES)
     Route: 065
     Dates: start: 20230530
  11. ACETAMINOPHEN [Concomitant]
     Active Substance: ACETAMINOPHEN
     Indication: Product used for unknown indication
     Dosage: UNK (1-2 TABLET)
     Route: 065
     Dates: start: 20240312, end: 20240312
  12. SERTRALINE [Concomitant]
     Active Substance: SERTRALINE HYDROCHLORIDE
     Indication: Depression
     Dosage: UNK, QD (ONE TO BE TAKEN EACH DAY FOR DEPRESSION/ANXIETY)
     Route: 065
     Dates: start: 20230403
  13. SERTRALINE [Concomitant]
     Active Substance: SERTRALINE HYDROCHLORIDE
     Indication: Anxiety
  14. ZOPICLONE [Concomitant]
     Active Substance: ZOPICLONE
     Indication: Product used for unknown indication
     Dosage: 1 DOSAGE FORM
     Route: 065
     Dates: start: 20240131, end: 20240131

REACTIONS (1)
  - Hypersensitivity [Recovered/Resolved]
